FAERS Safety Report 7586010-4 (Version None)
Quarter: 2011Q2

REPORT INFORMATION
  Report Type: 
  Country: None (occurrence: None)
  Receive Date: 20110624
  Receipt Date: 20110613
  Transmission Date: 20111010
  Serious: Yes (Hospitalization)
  Sender: FDA-Public Use
  Company Number: WAES 1106USA01459

PATIENT
  Age: 63 Year
  Sex: Female
  Weight: 50.3493 kg

DRUGS (1)
  1. DECADRON [Suspect]
     Indication: METASTASES TO CENTRAL NERVOUS SYSTEM
     Dosage: 4MG/Q6H/PO
     Route: 048
     Dates: start: 20110316

REACTIONS (6)
  - DEHYDRATION [None]
  - CULTURE URINE POSITIVE [None]
  - MENTAL STATUS CHANGES [None]
  - URINARY TRACT INFECTION [None]
  - PROTEUS TEST POSITIVE [None]
  - UNRESPONSIVE TO STIMULI [None]
